FAERS Safety Report 7399424-2 (Version None)
Quarter: 2011Q2

REPORT INFORMATION
  Report Type: 
  Country: None (occurrence: None)
  Receive Date: 20110407
  Receipt Date: 20110324
  Transmission Date: 20111010
  Serious: Yes (Death, Other)
  Sender: FDA-Public Use
  Company Number: PHHY2011US24968

PATIENT
  Age: 62 Year
  Sex: Male

DRUGS (3)
  1. OXCARBAZEPINE [Suspect]
     Indication: BIPOLAR DISORDER
     Dosage: UNK
  2. CARBAMAZEPINE [Suspect]
     Indication: BIPOLAR DISORDER
     Dosage: UNK
  3. LITHIUM [Concomitant]
     Dosage: UNK

REACTIONS (9)
  - BLOOD CREATININE INCREASED [None]
  - PURPURA [None]
  - LEUKOCYTOCLASTIC VASCULITIS [None]
  - RASH [None]
  - HENOCH-SCHONLEIN PURPURA [None]
  - DRUG HYPERSENSITIVITY [None]
  - HAEMATURIA [None]
  - RENAL FAILURE ACUTE [None]
  - GASTROINTESTINAL HAEMORRHAGE [None]
